FAERS Safety Report 22529930 (Version 2)
Quarter: 2023Q2

REPORT INFORMATION
  Report Type: Report from Study
  Country: CO (occurrence: CO)
  Receive Date: 20230607
  Receipt Date: 20230627
  Transmission Date: 20230722
  Serious: Yes (Hospitalization, Other)
  Sender: FDA-Public Use
  Company Number: CO-VER-202300031

PATIENT
  Age: 89 Year
  Sex: Male

DRUGS (1)
  1. TRIPTORELIN PAMOATE [Suspect]
     Active Substance: TRIPTORELIN PAMOATE
     Indication: Prostate cancer
     Dosage: PATIENT RECEIVED THE LAST DOSE OF THIS DRUG ON ?20/JAN/2023
     Route: 030
     Dates: start: 20180523

REACTIONS (6)
  - Therapy change [Not Recovered/Not Resolved]
  - Fall [Recovered/Resolved]
  - Road traffic accident [Not Recovered/Not Resolved]
  - Hip fracture [Not Recovered/Not Resolved]
  - Prostatic specific antigen decreased [Not Recovered/Not Resolved]
  - Insurance issue [Unknown]

NARRATIVE: CASE EVENT DATE: 20230501
